FAERS Safety Report 26055399 (Version 2)
Quarter: 2025Q4

REPORT INFORMATION
  Report Type: Report from Study
  Country: US (occurrence: US)
  Receive Date: 20251117
  Receipt Date: 20251209
  Transmission Date: 20260118
  Serious: Yes (Hospitalization, Other)
  Sender: SANOFI AVENTIS
  Company Number: US-SA-2025SA339539

PATIENT
  Age: 30 Year
  Sex: Male

DRUGS (1)
  1. ALTUVIIIO [Suspect]
     Active Substance: EFANESOCTOCOG ALFA
     Indication: Factor VIII deficiency
     Dosage: 3150 IU, QW
     Route: 042
     Dates: start: 20251031

REACTIONS (3)
  - Monoplegia [Unknown]
  - Hypoaesthesia [Unknown]
  - Spinal disorder [Unknown]

NARRATIVE: CASE EVENT DATE: 20250101
